FAERS Safety Report 15900098 (Version 1)
Quarter: 2019Q1

REPORT INFORMATION
  Report Type: Spontaneous
  Country: US (occurrence: US)
  Receive Date: 20190131
  Receipt Date: 20190131
  Transmission Date: 20190417
  Serious: Yes (Hospitalization)
  Sender: FDA-Public Use
  Company Number: None

PATIENT
  Age: 40 Year
  Sex: Female
  Weight: 60.75 kg

DRUGS (1)
  1. BUPROPION HCL 75MG TABLET ; DEA CLASS-LEGEND RX [Suspect]
     Active Substance: BUPROPION HYDROCHLORIDE
     Indication: ATTENTION DEFICIT/HYPERACTIVITY DISORDER
     Dosage: ?          QUANTITY:100 TABLET(S);?
     Route: 048

REACTIONS (13)
  - Dry skin [None]
  - Product substitution issue [None]
  - Fatigue [None]
  - Skin fissures [None]
  - Hypertension [None]
  - Pyrexia [None]
  - Pruritus [None]
  - Vomiting [None]
  - Skin haemorrhage [None]
  - Diarrhoea [None]
  - Erythema [None]
  - Lip dry [None]
  - Nausea [None]

NARRATIVE: CASE EVENT DATE: 20181222
